FAERS Safety Report 6207267-8 (Version None)
Quarter: 2009Q2

REPORT INFORMATION
  Report Type: 
  Country: None (occurrence: None)
  Receive Date: 20090522
  Receipt Date: 20090212
  Transmission Date: 20091009
  Serious: No
  Sender: FDA-Public Use
  Company Number: 8042972

PATIENT
  Age: 27 Year
  Sex: Female
  Weight: 71.8 kg

DRUGS (11)
  1. CIMZIA [Suspect]
     Indication: CROHN'S DISEASE
     Dosage: 400 MG SC
     Route: 058
     Dates: start: 20080804
  2. ASACOL [Concomitant]
  3. AZATHIOPRINE [Concomitant]
  4. CALCIUM [Concomitant]
  5. MAGNESIUM SULFATE [Concomitant]
  6. ALLOPURINOL [Concomitant]
  7. MULTI-VITAMIN [Concomitant]
  8. LASIX [Concomitant]
  9. LEVOTHYROXINE [Concomitant]
  10. ENTOCORT EC [Concomitant]
  11. CELEBREX [Concomitant]

REACTIONS (1)
  - SYSTEMIC LUPUS ERYTHEMATOSUS [None]
